FAERS Safety Report 14384853 (Version 3)
Quarter: 2018Q1

REPORT INFORMATION
  Report Type: Spontaneous
  Country: IT (occurrence: IT)
  Receive Date: 20180115
  Receipt Date: 20180222
  Transmission Date: 20180509
  Serious: Yes (Other)
  Sender: FDA-Public Use
  Company Number: IT-JNJFOC-20180111366

PATIENT
  Age: 83 Year
  Sex: Female

DRUGS (5)
  1. DEXKETOPROFEN [Interacting]
     Active Substance: DEXKETOPROFEN
     Indication: PRODUCT USED FOR UNKNOWN INDICATION
     Route: 065
  2. RAMIPRIL. [Interacting]
     Active Substance: RAMIPRIL
     Indication: HYPERTENSION
     Route: 048
  3. LANIZAC [Suspect]
     Active Substance: RANITIDINE HYDROCHLORIDE
     Indication: ARTHRALGIA
     Route: 048
  4. TRAMADOL HYDROCHLORIDE. [Suspect]
     Active Substance: TRAMADOL HYDROCHLORIDE
     Indication: ARTHRALGIA
     Route: 048
  5. RAMIPRIL. [Interacting]
     Active Substance: RAMIPRIL
     Indication: HYPERTENSION
     Route: 048

REACTIONS (6)
  - Malaise [Recovering/Resolving]
  - Hypertensive crisis [Recovering/Resolving]
  - Vomiting [Recovering/Resolving]
  - Drug interaction [Recovering/Resolving]
  - Nausea [Recovering/Resolving]
  - Vertigo [Recovering/Resolving]

NARRATIVE: CASE EVENT DATE: 20171112
